FAERS Safety Report 25480684 (Version 1)
Quarter: 2025Q2

REPORT INFORMATION
  Report Type: Spontaneous
  Country: US (occurrence: US)
  Receive Date: 20250625
  Receipt Date: 20250625
  Transmission Date: 20250716
  Serious: Yes (Death, Life-Threatening, Other)
  Sender: BRACCO
  Company Number: US-BRACCO-2025US03904

PATIENT
  Age: 61 Year
  Sex: Male

DRUGS (1)
  1. ISOVUE 370 [Suspect]
     Active Substance: IOPAMIDOL
     Indication: Angiogram
     Route: 042
     Dates: start: 20250527, end: 20250527

REACTIONS (4)
  - Cardiac arrest [Fatal]
  - Acute myocardial infarction [Fatal]
  - Metabolic acidosis [Fatal]
  - Contraindicated product administered [Not Recovered/Not Resolved]

NARRATIVE: CASE EVENT DATE: 20250527
